FAERS Safety Report 8085125-4 (Version None)
Quarter: 2012Q1

REPORT INFORMATION
  Report Type: 
  Country: None (occurrence: None)
  Receive Date: 20120128
  Receipt Date: 20110311
  Transmission Date: 20120608
  Serious: No
  Sender: FDA-Public Use
  Company Number: US-ABBOTT-11P-163-0711303-00

PATIENT
  Sex: Female
  Weight: 54 kg

DRUGS (3)
  1. OGESTREL 0.5/50-28 [Concomitant]
     Indication: ORAL CONTRACEPTION
  2. HUMIRA [Suspect]
     Indication: PSORIASIS
     Dates: start: 20110101
  3. HUMIRA [Suspect]
     Indication: PSORIATIC ARTHROPATHY

REACTIONS (1)
  - INJECTION SITE HAEMORRHAGE [None]
